FAERS Safety Report 16791649 (Version 1)
Quarter: 2019Q4

REPORT INFORMATION
  Report Type: Spontaneous
  Country: US (occurrence: US)
  Receive Date: 20190910
  Receipt Date: 20190910
  Transmission Date: 20200122
  Serious: Yes (Life-Threatening, Disabling, Other)
  Sender: FDA-Public Use
  Company Number: None

PATIENT
  Age: 33 Year
  Sex: Male
  Weight: 157.5 kg

DRUGS (6)
  1. ABILIFY MAINTENA [Suspect]
     Active Substance: ARIPIPRAZOLE
     Indication: SCHIZOPHRENIA
     Dosage: ?          QUANTITY:1 INJECTION(S);OTHER FREQUENCY:EVERY MONTH;?
     Route: 058
     Dates: start: 20160901
  2. AMIODARONE [Concomitant]
     Active Substance: AMIODARONE
  3. ABILIFY MAINTENA [Concomitant]
     Active Substance: ARIPIPRAZOLE
  4. N/A [Concomitant]
     Active Substance: UNSPECIFIED INGREDIENT
  5. ABILIFY MAINTENA [Suspect]
     Active Substance: ARIPIPRAZOLE
     Indication: PSYCHOTIC DISORDER
     Dosage: ?          QUANTITY:1 INJECTION(S);OTHER FREQUENCY:EVERY MONTH;?
     Route: 058
     Dates: start: 20160901
  6. DILTIAZEM ER [Concomitant]
     Active Substance: DILTIAZEM

REACTIONS (7)
  - Sexual activity increased [None]
  - Atrial fibrillation [None]
  - Behavioural addiction [None]
  - Compulsive shopping [None]
  - Gambling disorder [None]
  - Hyperphagia [None]
  - Polydipsia [None]

NARRATIVE: CASE EVENT DATE: 20190701
